FAERS Safety Report 5028983-X (Version None)
Quarter: 2006Q2

REPORT INFORMATION
  Report Type: 
  Country: None (occurrence: None)
  Receive Date: 20060619
  Receipt Date: 20060429
  Transmission Date: 20061013
  Serious: Yes (Disabling)
  Sender: FDA-Public Use
  Company Number: IR-SANOFI-SYNTHELABO-A01200604548

PATIENT
  Sex: Male
  Weight: 70 kg

DRUGS (6)
  1. UNKNOWN DRUG [Concomitant]
     Indication: NAUSEA
     Route: 042
  2. UNKNOWN DRUG [Concomitant]
     Indication: VOMITING
     Route: 042
  3. DEXAMETHASONE TAB [Concomitant]
     Indication: NAUSEA
     Route: 042
  4. DEXAMETHASONE TAB [Concomitant]
     Indication: VOMITING
     Route: 042
  5. ELOXATIN [Suspect]
     Indication: COLON CANCER
     Route: 042
  6. ELOXATIN [Suspect]
     Route: 042

REACTIONS (2)
  - LOSS OF CONSCIOUSNESS [None]
  - SHOCK [None]
